FAERS Safety Report 12977802 (Version 2)
Quarter: 2017Q1

REPORT INFORMATION
  Report Type: Spontaneous
  Country: MY (occurrence: MY)
  Receive Date: 20161128
  Receipt Date: 20170130
  Transmission Date: 20170428
  Serious: Yes (Hospitalization, Other)
  Sender: FDA-Public Use
  Company Number: PHHY2016MY162500

PATIENT
  Age: 38 Year
  Sex: Female

DRUGS (1)
  1. TEGRETOL [Suspect]
     Active Substance: CARBAMAZEPINE
     Indication: EPILEPSY
     Dosage: 100 MG, BID
     Route: 048
     Dates: start: 20161016, end: 20161024

REACTIONS (9)
  - Lip oedema [Unknown]
  - Lip ulceration [Unknown]
  - Conjunctivitis [Unknown]
  - Toxic epidermal necrolysis [Recovering/Resolving]
  - Stevens-Johnson syndrome [Recovering/Resolving]
  - Skin exfoliation [Unknown]
  - Dysphagia [Recovering/Resolving]
  - Pyrexia [Recovering/Resolving]
  - Rash [Recovering/Resolving]

NARRATIVE: CASE EVENT DATE: 20161022
